FAERS Safety Report 9361760 (Version 2)
Quarter: 2013Q3

REPORT INFORMATION
  Report Type: Spontaneous
  Country: IT (occurrence: IT)
  Receive Date: 20130621
  Receipt Date: 20130731
  Transmission Date: 20140515
  Serious: Yes (Hospitalization)
  Sender: FDA-Public Use
  Company Number: IT-BRISTOL-MYERS SQUIBB COMPANY-19024942

PATIENT
  Age: 84 Year
  Sex: Male

DRUGS (1)
  1. COUMADIN TABS 5 MG [Suspect]
     Indication: DEEP VEIN THROMBOSIS
     Dosage: 1DF: 1 UNIT. INTER: 09MAY13
     Route: 048
     Dates: start: 20110101

REACTIONS (3)
  - Wound haematoma [Recovering/Resolving]
  - Hypocoagulable state [Recovering/Resolving]
  - Impaired healing [Recovering/Resolving]
